FAERS Safety Report 7358962-9 (Version None)
Quarter: 2011Q1

REPORT INFORMATION
  Report Type: 
  Country: None (occurrence: None)
  Receive Date: 20110317
  Receipt Date: 20110315
  Transmission Date: 20110831
  Serious: Yes (Hospitalization, Other)
  Sender: FDA-Public Use
  Company Number: US-ELI_LILLY_AND_COMPANY-US201102005815

PATIENT
  Age: 65 Year
  Sex: Female

DRUGS (6)
  1. CLONAZEPAM [Concomitant]
  2. CYMBALTA [Suspect]
     Dosage: 60 MG, UNK
  3. STAVZOR [Concomitant]
  4. CYMBALTA [Suspect]
     Dosage: 90 MG, DAILY (1/D)
  5. CYMBALTA [Suspect]
     Dosage: 60 MG, DAILY (1/D)
  6. CYMBALTA [Suspect]
     Indication: DEPRESSION
     Dosage: 30 MG, UNK

REACTIONS (6)
  - DRUG EFFECT DECREASED [None]
  - HOSPITALISATION [None]
  - GASTROOESOPHAGEAL REFLUX DISEASE [None]
  - DELUSION [None]
  - PARAESTHESIA [None]
  - MANIA [None]
